FAERS Safety Report 9228593 (Version 1)
Quarter: 2013Q2

REPORT INFORMATION
  Report Type: Spontaneous
  Country: GB (occurrence: GB)
  Receive Date: 20130412
  Receipt Date: 20130412
  Transmission Date: 20140414
  Serious: Yes (Life-Threatening, Hospitalization, Disabling)
  Sender: FDA-Public Use
  Company Number: GB-BAYER-2013-045585

PATIENT
  Age: 85 Year
  Sex: Female

DRUGS (11)
  1. ACETYLSALICYLIC ACID [Suspect]
     Indication: PROPHYLAXIS
     Dosage: 225 MG, 2TOTAL
     Route: 048
     Dates: end: 20130324
  2. ACETYLSALICYLIC ACID [Suspect]
     Indication: PROPHYLAXIS
     Dosage: 300 MG, QD
     Route: 048
  3. ACETYLSALICYLIC ACID({=100 MG) [Suspect]
     Indication: PROPHYLAXIS
     Dosage: 75 MG, QD
     Route: 048
  4. CLEXANE [Interacting]
     Indication: PROPHYLAXIS
     Dosage: 20 MG, UNK
     Route: 058
     Dates: start: 20130316, end: 20130317
  5. CLOPIDOGREL [Interacting]
     Indication: CEREBROVASCULAR ACCIDENT
     Dosage: 75 MG, QD
     Route: 048
     Dates: start: 20130321, end: 20130324
  6. PRADAXA [Suspect]
     Indication: PROPHYLAXIS
     Dosage: 150 MG, QD
     Route: 048
     Dates: start: 20130316, end: 20130317
  7. ANAESTHETICS [Concomitant]
     Indication: HIP ARTHROPLASTY
     Dosage: UNK
     Dates: start: 20130315, end: 20130315
  8. GABAPENTIN [Concomitant]
     Dosage: 200 MG, BID
     Route: 048
  9. PARACETAMOL [Concomitant]
     Dosage: 1 G, QID
     Route: 048
  10. RAMIPRIL [Concomitant]
     Dosage: 5 MG, QD
     Route: 048
  11. SIMVASTATIN [Concomitant]
     Dosage: 40 MG, QD
     Route: 048

REACTIONS (2)
  - Ischaemic stroke [Not Recovered/Not Resolved]
  - Rectal haemorrhage [Not Recovered/Not Resolved]
